FAERS Safety Report 9778123 (Version 1)
Quarter: 2013Q4

REPORT INFORMATION
  Report Type: Spontaneous
  Country: BR (occurrence: BR)
  Receive Date: 20131223
  Receipt Date: 20131223
  Transmission Date: 20140711
  Serious: Yes (Other)
  Sender: FDA-Public Use
  Company Number: BR-JNJFOC-20131211453

PATIENT
  Sex: Male
  Weight: 74 kg

DRUGS (3)
  1. REMICADE [Suspect]
     Indication: CROHN^S DISEASE
     Route: 042
     Dates: start: 201309
  2. REMICADE [Suspect]
     Indication: CROHN^S DISEASE
     Route: 042
     Dates: start: 20131122
  3. REMICADE [Suspect]
     Indication: CROHN^S DISEASE
     Route: 042
     Dates: start: 2010

REACTIONS (4)
  - Osteoporosis [Recovering/Resolving]
  - Blood pressure decreased [Recovered/Resolved]
  - Dizziness [Unknown]
  - Infusion related reaction [Recovered/Resolved]
